FAERS Safety Report 20209736 (Version 2)
Quarter: 2022Q1

REPORT INFORMATION
  Report Type: Spontaneous
  Country: SK (occurrence: SK)
  Receive Date: 20211221
  Receipt Date: 20220211
  Transmission Date: 20220424
  Serious: Yes (Death)
  Sender: FDA-Public Use
  Company Number: SK-TEVA-2021-SK-1988984

PATIENT
  Age: 22 Year
  Sex: Male
  Weight: 71 kg

DRUGS (2)
  1. TRAMADOL [Suspect]
     Active Substance: TRAMADOL
     Route: 048
  2. CODEINE [Suspect]
     Active Substance: CODEINE
     Route: 048

REACTIONS (1)
  - Intentional overdose [Fatal]
